FAERS Safety Report 18609632 (Version 2)
Quarter: 2020Q4

REPORT INFORMATION
  Report Type: Spontaneous
  Country: JP (occurrence: JP)
  Receive Date: 20201214
  Receipt Date: 20201222
  Transmission Date: 20210114
  Serious: Yes (Other)
  Sender: FDA-Public Use
  Company Number: JP-009507513-2012JPN001061J

PATIENT
  Age: 5 Decade
  Sex: Female

DRUGS (2)
  1. DESALEX TABLETS 5MG [Suspect]
     Active Substance: DESLORATADINE
     Dosage: 5 MILLIGRAM, QD
     Route: 048
     Dates: start: 20201002, end: 20201124
  2. TSUMURA KEISHIBUKURYOGAN EXTRACT GRANULES FOR ETHICAL USE [Concomitant]
     Dosage: UNK
     Route: 048
     Dates: end: 20201124

REACTIONS (1)
  - Hydronephrosis [Recovered/Resolved]

NARRATIVE: CASE EVENT DATE: 20201124
